FAERS Safety Report 8572340-6 (Version None)
Quarter: 2012Q2

REPORT INFORMATION
  Report Type: 
  Country: None (occurrence: None)
  Receive Date: 20120423
  Receipt Date: 20091118
  Transmission Date: 20120825
  Serious: Yes (Other)
  Sender: FDA-Public Use
  Company Number: PHEH2009US10313

PATIENT
  Sex: Female
  Weight: 48.5 kg

DRUGS (7)
  1. DOXORUBICIN HCL [Concomitant]
  2. EXJADE [Suspect]
     Indication: IRON OVERLOAD
     Dosage: 750 MG, QD, ORAL
     Route: 048
     Dates: start: 20090730, end: 20090831
  3. EXJADE [Suspect]
     Indication: HAEMOCHROMATOSIS
     Dosage: 750 MG, QD, ORAL
     Route: 048
     Dates: start: 20090730, end: 20090831
  4. ETOPOSIDE [Concomitant]
  5. VINCRISTINE [Concomitant]
  6. CYCLOPHOSPHAMIDE [Concomitant]
  7. PREDNISONE TAB [Concomitant]

REACTIONS (2)
  - RECURRENT CANCER [None]
  - NECK MASS [None]
